FAERS Safety Report 11898685 (Version 1)
Quarter: 2016Q1

REPORT INFORMATION
  Report Type: Spontaneous
  Country: US (occurrence: None)
  Receive Date: 20160107
  Receipt Date: 20160107
  Transmission Date: 20160526
  Serious: Yes (Other)
  Sender: FDA-Public Use
  Company Number: None

PATIENT
  Age: 48 Year
  Sex: Female
  Weight: 90.72 kg

DRUGS (1)
  1. OXYTROL [Suspect]
     Active Substance: OXYBUTYNIN
     Indication: HYPERTONIC BLADDER
     Dosage: 1 PATCH, APPLIED AS MEDICATED PATCH TO SKIN
     Route: 061
     Dates: start: 20160102, end: 20160106

REACTIONS (5)
  - Application site pruritus [None]
  - Application site discolouration [None]
  - Application site pain [None]
  - Application site dryness [None]
  - Application site reaction [None]

NARRATIVE: CASE EVENT DATE: 20160106
